FAERS Safety Report 8881567 (Version 1)
Quarter: 2012Q4

REPORT INFORMATION
  Report Type: 
  Country: US (occurrence: US)
  Receive Date: 20121101
  Receipt Date: 20121101
  Transmission Date: 20130627
  Serious: No
  Sender: FDA-Public Use
  Company Number: US-PFIZER INC-2012271303

PATIENT
  Age: 47 Year
  Sex: Female
  Weight: 58.96 kg

DRUGS (4)
  1. LYRICA [Suspect]
     Indication: CHRONIC BACK PAIN
     Dosage: 25 mg, 1x/day
     Route: 048
     Dates: start: 20121026
  2. LYRICA [Suspect]
     Indication: FOOT PAIN
  3. AMBIEN [Concomitant]
     Dosage: 6 mg, UNK
  4. ELAVIL [Concomitant]
     Indication: FIBROMYALGIA
     Dosage: 15 mg, UNK

REACTIONS (2)
  - Depression [Unknown]
  - Irritability [Unknown]
